FAERS Safety Report 19169545 (Version 2)
Quarter: 2021Q2

REPORT INFORMATION
  Report Type: Spontaneous
  Country: SE (occurrence: SE)
  Receive Date: 20210422
  Receipt Date: 20210625
  Transmission Date: 20210717
  Serious: No
  Sender: FDA-Public Use
  Company Number: SE-GLAXOSMITHKLINE-SECH2021021765

PATIENT
  Sex: Female

DRUGS (2)
  1. NICOTINELL [Suspect]
     Active Substance: NICOTINE
     Indication: SMOKING CESSATION THERAPY
     Dosage: UNK
  2. NICOTINELL [Suspect]
     Active Substance: NICOTINE
     Indication: SMOKING CESSATION THERAPY
     Dosage: 1 DF, 1D

REACTIONS (4)
  - Hypertension [Unknown]
  - Nicotine dependence [Unknown]
  - Oral pain [Unknown]
  - Palmoplantar pustulosis [Unknown]
